FAERS Safety Report 8761258 (Version 1)
Quarter: 2012Q4

REPORT INFORMATION
  Report Type: 
  Country: GB (occurrence: GB)
  Receive Date: 20120830
  Receipt Date: 20120830
  Transmission Date: 20130627
  Serious: Yes (Disabling, Other)
  Sender: FDA-Public Use
  Company Number: GB-ASTRAZENECA-2012SE60634

PATIENT
  Age: 32 Year
  Sex: Male

DRUGS (3)
  1. SEROQUEL [Suspect]
     Indication: ANXIETY
     Route: 048
     Dates: start: 20090219, end: 20090221
  2. SEROQUEL [Suspect]
     Indication: DEPRESSION
     Route: 048
     Dates: start: 20090219, end: 20090221
  3. DIAZEPAM [Concomitant]

REACTIONS (3)
  - Emotional distress [Recovered/Resolved]
  - Dyskinesia [Recovered/Resolved]
  - Off label use [Unknown]
